FAERS Safety Report 10120951 (Version 1)
Quarter: 2014Q2

REPORT INFORMATION
  Report Type: Spontaneous
  Country: US (occurrence: US)
  Receive Date: 20140425
  Receipt Date: 20140425
  Transmission Date: 20141212
  Serious: Yes (Other)
  Sender: FDA-Public Use
  Company Number: US-INCYTE CORPORATION-2014IN001071

PATIENT
  Sex: 0

DRUGS (1)
  1. JAKAFI [Suspect]
     Dosage: NOT SPECIFIED
     Dates: start: 2012

REACTIONS (1)
  - Acute promyelocytic leukaemia [Unknown]
